FAERS Safety Report 5304659-6 (Version None)
Quarter: 2007Q2

REPORT INFORMATION
  Report Type: 
  Country: None (occurrence: None)
  Receive Date: 20070416
  Receipt Date: 20070403
  Transmission Date: 20071010
  Serious: Yes (Death)
  Sender: FDA-Public Use
  Company Number: US019809

PATIENT
  Age: 26 Year
  Sex: Male

DRUGS (2)
  1. ACTIQ [Suspect]
     Indication: MUSCULOSKELETAL PAIN
     Dosage: 6 LOZENGES PO
     Route: 048
     Dates: start: 20040101, end: 20060101
  2. OXYCONTIN [Concomitant]

REACTIONS (4)
  - COMPLETED SUICIDE [None]
  - DEPRESSION [None]
  - DRUG ABUSER [None]
  - THINKING ABNORMAL [None]
